FAERS Safety Report 8545685-3 (Version None)
Quarter: 2012Q3

REPORT INFORMATION
  Report Type: 
  Country: None (occurrence: None)
  Receive Date: 20120727
  Receipt Date: 20120713
  Transmission Date: 20120928
  Serious: Yes (Other)
  Sender: FDA-Public Use
  Company Number: CHPA2012US015612

PATIENT
  Age: 77 Year
  Sex: Female

DRUGS (4)
  1. VITAMINS NOS [Concomitant]
     Indication: SUPPLEMENTATION THERAPY
     Dosage: UNK, UNK
  2. EXCEDRIN (MIGRAINE) [Suspect]
     Indication: HEADACHE
     Dosage: 2 CAPSULES,  2-3 PER DAY PRN
     Route: 048
  3. THYROID THERAPY [Concomitant]
     Indication: HYPOTHYROIDISM
     Dosage: UNK, UNK
  4. PITUITARY AND HYPOTHALAMIC HORMONES [Concomitant]
     Indication: HYPOPITUITARISM
     Dosage: UNK, UNK

REACTIONS (1)
  - DRUG DEPENDENCE [None]
